FAERS Safety Report 6305237-2 (Version None)
Quarter: 2009Q3

REPORT INFORMATION
  Report Type: 
  Country: None (occurrence: None)
  Receive Date: 20090811
  Receipt Date: 20090730
  Transmission Date: 20100115
  Serious: Yes (Other)
  Sender: FDA-Public Use
  Company Number: PHHY2009BR31859

PATIENT
  Age: 68 Year
  Sex: Female

DRUGS (7)
  1. DIOVAN HCT [Suspect]
     Indication: HYPERTENSION
     Dosage: 80/12.5 MG
     Route: 048
  2. DIOVAN HCT [Suspect]
     Dosage: 2 TABLETS (80/12.5 MG)
  3. SIMVASTATIN [Concomitant]
     Indication: BLOOD CHOLESTEROL
     Dosage: 1 TABLET (20 MG) /DAY
     Route: 048
     Dates: start: 20081001
  4. OLCADIL [Concomitant]
     Indication: INSOMNIA
     Dosage: 2 MG
     Route: 048
     Dates: start: 20060101
  5. PROPATYLNITRATE [Concomitant]
     Indication: ANGINA PECTORIS
     Dosage: 2 TABLETS (10 MG ) PER DAY
  6. SOMALGIN [Concomitant]
     Dosage: 1 TABLET (100 MG) DAILY
     Route: 048
  7. RYTMONORM [Concomitant]
     Indication: ARRHYTHMIA
     Dosage: 1 TABLET (300 MG)/DAY

REACTIONS (2)
  - ANGINA PECTORIS [None]
  - BLOOD PRESSURE INCREASED [None]
